FAERS Safety Report 8276092-9 (Version None)
Quarter: 2012Q2

REPORT INFORMATION
  Report Type: 
  Country: None (occurrence: None)
  Receive Date: 20120405
  Receipt Date: 20120326
  Transmission Date: 20120825
  Serious: Yes (Death, Life-Threatening, Hospitalization, Disabling, Other)
  Sender: FDA-Public Use
  Company Number: 2009AL004457

PATIENT
  Sex: Male
  Weight: 74.8435 kg

DRUGS (56)
  1. DIGOXIN [Suspect]
     Indication: PRODUCT USED FOR UNKNOWN INDICATION
     Dosage: 0.25 MG;QD;PO
     Route: 048
     Dates: start: 20040624, end: 20070723
  2. IBUPROFEN (ADVIL) [Concomitant]
  3. BUSPAR [Concomitant]
  4. CEFAZOLIN [Concomitant]
  5. METAMUCIL-2 [Concomitant]
  6. ALBUTEROL [Concomitant]
  7. ATIVAN [Concomitant]
  8. KEFLEX [Concomitant]
  9. MIRALAX [Concomitant]
  10. PAROXETINE [Concomitant]
  11. ALTACE [Concomitant]
  12. ATROVENT [Concomitant]
  13. CATAPRES [Concomitant]
  14. ENALAPRIL MALEATE [Concomitant]
  15. HYDRALAZINE HCL [Concomitant]
  16. KLONOPIN [Concomitant]
  17. LASIX [Concomitant]
  18. LOVENOX [Concomitant]
  19. METOPROLOL TARTRATE [Concomitant]
  20. MILK OF MAGNESIA TAB [Concomitant]
  21. VANCOCIN HYDROCHLORIDE [Concomitant]
  22. VASOTEC [Concomitant]
  23. COUMADIN [Concomitant]
  24. OMEPRAZOLE [Concomitant]
  25. ALPRAZOLAM [Concomitant]
  26. CAPTOPRIL [Concomitant]
  27. INSULIN [Concomitant]
  28. NAMENDA [Concomitant]
  29. NITRO-BID [Concomitant]
  30. SEROQUEL [Concomitant]
  31. THIAMINE HCL [Concomitant]
  32. NIPRIDE [Concomitant]
  33. PEPCID [Concomitant]
  34. ASPIRIN [Concomitant]
  35. CLONAZEPAM [Concomitant]
  36. DEPO-MEDROL [Concomitant]
  37. MYCOLOGY II CREAM [Concomitant]
  38. PLAVIX [Concomitant]
  39. SUCRALFATE [Concomitant]
  40. TYLENOL (CAPLET) [Concomitant]
  41. ALDACTONE [Concomitant]
  42. DARVOCET [Concomitant]
  43. HUMIBID DM [Concomitant]
  44. LIPITOR [Concomitant]
  45. OPIUM [Concomitant]
  46. ARICEPT [Concomitant]
  47. CARDIZEM [Concomitant]
  48. DEMEROL [Concomitant]
  49. ASPIRIN [Concomitant]
  50. LEVAQUIN [Concomitant]
  51. MEGACE [Concomitant]
  52. MOTRIN [Concomitant]
  53. PAXIL [Concomitant]
  54. POTASSIUM CHLORIDE [Concomitant]
  55. PREVACID [Concomitant]
  56. RANITIDINE [Concomitant]

REACTIONS (93)
  - FAILURE TO THRIVE [None]
  - CHEST PAIN [None]
  - ACUTE CORONARY SYNDROME [None]
  - CARDIAC FAILURE CONGESTIVE [None]
  - FALL [None]
  - AORTIC ANEURYSM [None]
  - ANXIETY [None]
  - NERVOUSNESS [None]
  - ARTHRALGIA [None]
  - RASH [None]
  - AGITATION [None]
  - PAIN [None]
  - MALNUTRITION [None]
  - ESSENTIAL HYPERTENSION [None]
  - PROCEDURAL NAUSEA [None]
  - INSOMNIA [None]
  - PAIN IN EXTREMITY [None]
  - DISEASE RECURRENCE [None]
  - PULSE ABSENT [None]
  - ACUTE RESPIRATORY FAILURE [None]
  - NEPHROPATHY [None]
  - PNEUMONITIS [None]
  - ARTHROPATHY [None]
  - HEART RATE IRREGULAR [None]
  - APNOEA [None]
  - ATRIAL FIBRILLATION [None]
  - LEFT VENTRICULAR DYSFUNCTION [None]
  - PEPTIC ULCER [None]
  - DIZZINESS [None]
  - AMNESIA [None]
  - ASTHENIA [None]
  - HYPOTENSION [None]
  - SLEEP DISORDER [None]
  - ARTHRITIS [None]
  - SENILE DEMENTIA [None]
  - HEADACHE [None]
  - LAZINESS [None]
  - CONSTIPATION [None]
  - DEPRESSION [None]
  - CHOKING [None]
  - RESPIRATORY ACIDOSIS [None]
  - TACHYCARDIA [None]
  - DELIRIUM [None]
  - LABILE BLOOD PRESSURE [None]
  - SPINAL OSTEOARTHRITIS [None]
  - PALPITATIONS [None]
  - ABDOMINAL PAIN [None]
  - WEIGHT DECREASED [None]
  - DECREASED APPETITE [None]
  - SLEEP APNOEA SYNDROME [None]
  - DYSACUSIS [None]
  - NOCTURIA [None]
  - GASTRITIS [None]
  - AGGRESSION [None]
  - TOXIC ENCEPHALOPATHY [None]
  - URINARY INCONTINENCE [None]
  - CAROTID ARTERY STENOSIS [None]
  - BRADYCARDIA [None]
  - DYSPHAGIA [None]
  - AGEUSIA [None]
  - DYSPEPSIA [None]
  - DIPLOPIA [None]
  - ARTERIAL INSUFFICIENCY [None]
  - LOSS OF CONSCIOUSNESS [None]
  - ASBESTOSIS [None]
  - ACUTE MYOCARDIAL INFARCTION [None]
  - FOLLICULITIS [None]
  - FATIGUE [None]
  - NAUSEA [None]
  - AORTITIS [None]
  - BACK PAIN [None]
  - LACTIC ACIDOSIS [None]
  - LETHARGY [None]
  - PALLOR [None]
  - GASTROOESOPHAGEAL REFLUX DISEASE [None]
  - ANGINA UNSTABLE [None]
  - TRANSIENT ISCHAEMIC ATTACK [None]
  - CHEST DISCOMFORT [None]
  - MENTAL STATUS CHANGES [None]
  - INJURY [None]
  - ECONOMIC PROBLEM [None]
  - ARRHYTHMIA [None]
  - DYSPNOEA [None]
  - MUSCULAR WEAKNESS [None]
  - STRESS [None]
  - SKIN LESION [None]
  - EXCORIATION [None]
  - CONFUSIONAL STATE [None]
  - METABOLIC ACIDOSIS [None]
  - MALIGNANT HYPERTENSION [None]
  - PNEUMONIA [None]
  - DISORIENTATION [None]
  - EMBOLIC STROKE [None]
